FAERS Safety Report 25702804 (Version 3)
Quarter: 2025Q4

REPORT INFORMATION
  Report Type: Report from Study
  Country: US (occurrence: US)
  Receive Date: 20250819
  Receipt Date: 20251016
  Transmission Date: 20260117
  Serious: Yes (Life-Threatening, Hospitalization)
  Sender: EISAI
  Company Number: US-Eisai-EC-2025-195072

PATIENT
  Age: 77 Year
  Sex: Male
  Weight: 54.6 kg

DRUGS (21)
  1. LECANEMAB [Suspect]
     Active Substance: LECANEMAB
     Indication: Dementia Alzheimer^s type
     Route: 042
     Dates: start: 20250225, end: 20250613
  2. ASCORBIC ACID [Concomitant]
     Active Substance: ASCORBIC ACID
     Indication: Supplementation therapy
     Route: 048
     Dates: start: 202307
  3. CETIRIZINE [Concomitant]
     Active Substance: CETIRIZINE HYDROCHLORIDE
     Indication: Hypersensitivity
     Route: 048
     Dates: start: 202307
  4. FLUOXETINE [Concomitant]
     Active Substance: FLUOXETINE HYDROCHLORIDE
     Indication: Product used for unknown indication
     Route: 048
     Dates: start: 202307
  5. ROSUVASTATIN [Concomitant]
     Active Substance: ROSUVASTATIN
     Indication: Dyslipidaemia
     Route: 048
     Dates: start: 202307
  6. HERBALS\SAW PALMETTO [Concomitant]
     Active Substance: HERBALS\SAW PALMETTO
     Indication: Supplementation therapy
     Route: 048
     Dates: start: 202307
  7. CALCIUM CARBONATE\CHOLECALCIFEROL [Concomitant]
     Active Substance: CALCIUM CARBONATE\CHOLECALCIFEROL
     Indication: Supplementation therapy
     Route: 048
     Dates: start: 202307
  8. FOLIC ACID [Concomitant]
     Active Substance: FOLIC ACID
     Indication: Supplementation therapy
     Route: 048
     Dates: start: 202307
  9. LOSARTAN [Concomitant]
     Active Substance: LOSARTAN
     Indication: Hypertension
     Route: 048
     Dates: start: 202307
  10. LUTEIN-ZEAXANTHIN [Concomitant]
     Indication: Supplementation therapy
     Route: 048
     Dates: start: 202307
  11. METFORMIN [Concomitant]
     Active Substance: METFORMIN HYDROCHLORIDE
     Indication: Diabetes mellitus
     Route: 048
     Dates: start: 202307
  12. NEBIVOLOL [Concomitant]
     Active Substance: NEBIVOLOL
     Indication: Product used for unknown indication
     Route: 048
     Dates: start: 202307
  13. OMEPRAZOLE [Concomitant]
     Active Substance: OMEPRAZOLE
     Indication: Gastrooesophageal reflux disease
     Route: 048
     Dates: start: 202307
  14. TYROSINE [Concomitant]
     Active Substance: TYROSINE
     Indication: Supplementation therapy
     Route: 048
     Dates: start: 202401
  15. DONEPEZIL [Concomitant]
     Active Substance: DONEPEZIL
     Indication: Dementia Alzheimer^s type
     Route: 048
     Dates: start: 202405
  16. MEMANTINE [Concomitant]
     Active Substance: MEMANTINE
     Indication: Dementia Alzheimer^s type
     Route: 048
     Dates: start: 202501
  17. AZELASTINE [Concomitant]
     Active Substance: AZELASTINE
     Indication: Rhinorrhoea
     Dates: start: 202506
  18. FLUTICASONE [Concomitant]
     Active Substance: FLUTICASONE
     Indication: Rhinorrhoea
     Dates: start: 202506
  19. BALOXAVIR [Concomitant]
     Active Substance: BALOXAVIR
     Indication: Influenza
     Route: 048
     Dates: start: 202506, end: 202506
  20. OSELTAMIVIR [Concomitant]
     Active Substance: OSELTAMIVIR
     Indication: Influenza
     Route: 048
     Dates: start: 202506, end: 202506
  21. BENZONATATE [Concomitant]
     Active Substance: BENZONATATE
     Indication: Cough
     Route: 048
     Dates: start: 202506, end: 202507

REACTIONS (3)
  - Subdural haematoma [Recovering/Resolving]
  - Seizure [Recovered/Resolved]
  - Cerebral infarction [Recovering/Resolving]

NARRATIVE: CASE EVENT DATE: 20250623
